FAERS Safety Report 9106916 (Version 1)
Quarter: 2013Q1

REPORT INFORMATION
  Report Type: Spontaneous
  Country: SG (occurrence: SG)
  Receive Date: 20130221
  Receipt Date: 20130221
  Transmission Date: 20140127
  Serious: Yes (Life-Threatening, Other)
  Sender: FDA-Public Use
  Company Number: SG-ROXANE LABORATORIES, INC.-2013-RO-00265RO

PATIENT
  Age: 53 Year
  Sex: Male

DRUGS (7)
  1. CLOPIDOGREL [Suspect]
     Indication: ACUTE MYOCARDIAL INFARCTION
     Dosage: 600 MG
  2. CLOPIDOGREL [Suspect]
     Dosage: 75 MG
  3. CLOPIDOGREL [Suspect]
     Dosage: 150 MG
  4. CLOPIDOGREL [Suspect]
     Dosage: 300 MG
  5. ASPIRIN [Suspect]
     Indication: ACUTE MYOCARDIAL INFARCTION
     Dosage: 300 MG
  6. ASPIRIN [Suspect]
     Dosage: 100 MG
  7. ABCIXIMAB [Concomitant]
     Route: 016

REACTIONS (4)
  - Thrombosis in device [Recovered/Resolved]
  - Acute myocardial infarction [Recovered/Resolved]
  - Rash [Recovered/Resolved]
  - Dyspepsia [Recovered/Resolved]
